FAERS Safety Report 6983588-6 (Version None)
Quarter: 2010Q3

REPORT INFORMATION
  Report Type: 
  Country: None (occurrence: None)
  Receive Date: 20100914
  Receipt Date: 20081014
  Transmission Date: 20110219
  Serious: No
  Sender: FDA-Public Use
  Company Number: US-WYE-H06422408

PATIENT
  Age: 71 Year
  Sex: Male

DRUGS (3)
  1. ADVIL LIQUI-GELS [Suspect]
     Indication: PAIN IN EXTREMITY
     Route: 048
     Dates: start: 20081011, end: 20081012
  2. RELIFEN [Concomitant]
  3. FLOMAX [Concomitant]

REACTIONS (1)
  - DYSURIA [None]
